FAERS Safety Report 4584496-0 (Version None)
Quarter: 2005Q1

REPORT INFORMATION
  Report Type: 
  Country: None (occurrence: None)
  Receive Date: 20050125
  Receipt Date: 20041105
  Transmission Date: 20050727
  Serious: No
  Sender: FDA-Public Use
  Company Number: USA041183378

PATIENT
  Age: 59 Year
  Sex: Female

DRUGS (4)
  1. FORTEO [Suspect]
     Indication: OSTEOPOROSIS
  2. SYNTHROID [Concomitant]
  3. RHINOCORT [Concomitant]
  4. ALLEGRA [Concomitant]

REACTIONS (3)
  - MUSCLE SPASMS [None]
  - MUSCLE TIGHTNESS [None]
  - NAUSEA [None]
